FAERS Safety Report 6982016-4 (Version None)
Quarter: 2010Q3

REPORT INFORMATION
  Report Type: 
  Country: None (occurrence: None)
  Receive Date: 20100914
  Receipt Date: 20091105
  Transmission Date: 20110219
  Serious: No
  Sender: FDA-Public Use
  Company Number: US-PFIZER INC-2009294406

PATIENT
  Sex: Male

DRUGS (10)
  1. LYRICA [Suspect]
     Indication: DIABETIC NEUROPATHY
     Dosage: 50 MG, 1X/DAY
     Route: 048
     Dates: start: 20090901
  2. LYRICA [Suspect]
     Dosage: 450 MG, 1X/DAY
     Route: 048
     Dates: end: 20091103
  3. METHADONE [Concomitant]
     Indication: PAIN
     Dosage: UNK
  4. ZOLOFT [Concomitant]
     Dosage: UNK
  5. BUSPAR [Concomitant]
     Dosage: UNK
  6. DYAZIDE [Concomitant]
     Dosage: UNK
  7. COREG [Concomitant]
     Dosage: UNK
  8. VASOTEC [Concomitant]
     Dosage: UNK
  9. LANTUS [Concomitant]
     Dosage: UNK
  10. NOVOLIN 70/30 [Concomitant]
     Dosage: UNK

REACTIONS (7)
  - DRUG PRESCRIBING ERROR [None]
  - DRY SKIN [None]
  - INFLUENZA LIKE ILLNESS [None]
  - OEDEMA PERIPHERAL [None]
  - ORAL HERPES [None]
  - PAIN [None]
  - PYREXIA [None]
